FAERS Safety Report 6139915-5 (Version None)
Quarter: 2009Q2

REPORT INFORMATION
  Report Type: 
  Country: None (occurrence: None)
  Receive Date: 20090401
  Receipt Date: 20090330
  Transmission Date: 20091009
  Serious: Yes (Life-Threatening, Hospitalization, Disabling)
  Sender: FDA-Public Use
  Company Number: US-MERCK-0903USA02893

PATIENT
  Age: 39 Year
  Sex: Female

DRUGS (4)
  1. SINGULAIR [Suspect]
     Indication: ASTHMA
     Route: 048
     Dates: start: 20050101, end: 20090301
  2. ZYFLO CR [Suspect]
     Indication: ASTHMA
     Route: 065
     Dates: start: 20090303, end: 20090307
  3. DECADRON [Suspect]
     Indication: LARYNGOSPASM
     Route: 042
     Dates: start: 20090311
  4. EPINEPHRINE [Suspect]
     Indication: LARYNGOSPASM
     Route: 042
     Dates: start: 20090311

REACTIONS (9)
  - ANGIOEDEMA [None]
  - ASTHMA [None]
  - BRAIN INJURY [None]
  - CEREBROVASCULAR ACCIDENT [None]
  - HYPERTENSIVE CRISIS [None]
  - LARYNGOSPASM [None]
  - PRURITUS [None]
  - RASH [None]
  - URTICARIA [None]
